FAERS Safety Report 4318366-X (Version None)
Quarter: 2004Q1

REPORT INFORMATION
  Report Type: 
  Country: None (occurrence: None)
  Receive Date: 20040315
  Receipt Date: 20040227
  Transmission Date: 20041129
  Serious: Yes (Other)
  Sender: FDA-Public Use
  Company Number: 2004-DE-00961GD

PATIENT
  Sex: Female

DRUGS (1)
  1. NEVIRAPINE (NEVIRAPINE) (SIR)(NEVIRAPINE) [Suspect]
     Indication: PROPHYLAXIS AGAINST HIV INFECTION
     Dosage: 2 MG/KG (ONCE), PO
     Route: 048

REACTIONS (3)
  - DRUG EXPOSURE DURING PREGNANCY [None]
  - HIV INFECTION [None]
  - INTRAUTERINE INFECTION [None]
